FAERS Safety Report 8927581 (Version 3)
Quarter: 2013Q1

REPORT INFORMATION
  Report Type: Report from Study
  Country: PT (occurrence: PT)
  Receive Date: 20121127
  Receipt Date: 20130204
  Transmission Date: 20140127
  Serious: Yes (Other)
  Sender: FDA-Public Use
  Company Number: PT-BAYER-2012-122822

PATIENT
  Age: 34 Year
  Sex: Female

DRUGS (3)
  1. BETAFERON [Suspect]
     Indication: RELAPSING-REMITTING MULTIPLE SCLEROSIS
     Dosage: UNK
     Dates: start: 20110628
  2. BETAFERON [Suspect]
     Indication: RELAPSING-REMITTING MULTIPLE SCLEROSIS
     Dosage: UNK
     Dates: start: 20120929, end: 20121105
  3. ANTINEOPLASTIC AGENTS [Concomitant]
     Indication: INTESTINAL ADENOCARCINOMA
     Dosage: UNK

REACTIONS (1)
  - Hepatic enzyme abnormal [Recovered/Resolved]
